FAERS Safety Report 5062756-7 (Version None)
Quarter: 2006Q3

REPORT INFORMATION
  Report Type: 
  Country: None (occurrence: None)
  Receive Date: 20060724
  Receipt Date: 20060712
  Transmission Date: 20061208
  Serious: Yes (Hospitalization, Other)
  Sender: FDA-Public Use
  Company Number: 2006-01818

PATIENT
  Age: 76 Year
  Sex: Female

DRUGS (1)
  1. VELCADE [Suspect]
     Indication: MULTIPLE MYELOMA
     Dates: start: 20050101, end: 20060101

REACTIONS (4)
  - CHILLS [None]
  - CYANOSIS [None]
  - DISEASE RECURRENCE [None]
  - HYPERTENSION [None]
